FAERS Safety Report 7357315-7 (Version None)
Quarter: 2011Q1

REPORT INFORMATION
  Report Type: 
  Country: None (occurrence: None)
  Receive Date: 20110308
  Receipt Date: 20110228
  Transmission Date: 20110831
  Serious: Yes (Other)
  Sender: FDA-Public Use
  Company Number: 844679

PATIENT
  Age: 52 Year
  Sex: Female

DRUGS (5)
  1. DULOXETINE [Suspect]
     Indication: DEPRESSION
     Dosage: 60 MG, DAY;
  2. (MIDAZOLAM) [Suspect]
     Indication: ANAESTHESIA
     Dosage: 1 MG, INTRAVENOUS (NOT OTHERWISE SPECIFIED)
     Route: 042
  3. HYOSCYAMINE SULFATE [Concomitant]
  4. PETHIDINE HYDROCHLORIDE) [Suspect]
     Indication: ANAESTHESIA
     Dosage: 80 MG, INTRAVENOUS, NOT OTHER WISE SPECIFIEDF)
     Route: 042
  5. IBANDRONATE SODIUM [Concomitant]

REACTIONS (2)
  - DRUG INTERACTION [None]
  - SEROTONIN SYNDROME [None]
